FAERS Safety Report 9621153 (Version 2)
Quarter: 2013Q4

REPORT INFORMATION
  Report Type: Spontaneous
  Country: US (occurrence: US)
  Receive Date: 20131015
  Receipt Date: 20131025
  Transmission Date: 20140711
  Serious: Yes (Hospitalization, Other)
  Sender: FDA-Public Use
  Company Number: US-BAXTER-2013BAX039851

PATIENT
  Age: 60 Year
  Sex: Male

DRUGS (4)
  1. DIANEAL LOW CALCIUM [Suspect]
     Indication: PERITONEAL DIALYSIS
     Route: 033
     Dates: start: 20120914
  2. DIANEAL LOW CALCIUM [Suspect]
     Route: 033
  3. DIANEAL LOW CALCIUM [Suspect]
     Indication: PERITONEAL DIALYSIS
     Dosage: 2 BAGS
     Route: 033
     Dates: start: 20120914, end: 20130925
  4. DIANEAL LOW CALCIUM [Suspect]
     Dosage: 2 BAGS
     Route: 033

REACTIONS (4)
  - Impaired gastric emptying [Recovering/Resolving]
  - Blood magnesium decreased [Recovered/Resolved]
  - Blood potassium decreased [Recovering/Resolving]
  - Abasia [Recovering/Resolving]
